FAERS Safety Report 11507918 (Version 1)
Quarter: 2015Q3

REPORT INFORMATION
  Report Type: Spontaneous
  Country: US (occurrence: None)
  Receive Date: 20150914
  Receipt Date: 20150914
  Transmission Date: 20151125
  Serious: Yes (Life-Threatening, Hospitalization, Disabling)
  Sender: FDA-Public Use
  Company Number: None

PATIENT
  Age: 77 Year
  Sex: Female
  Weight: 61.69 kg

DRUGS (10)
  1. PRADAXA [Suspect]
     Active Substance: DABIGATRAN ETEXILATE MESYLATE
     Indication: ATRIAL FIBRILLATION
     Dosage: 150 MG 2 PILLS/DAY 2/DAY MOUTH
     Route: 048
     Dates: start: 201401, end: 201401
  2. DIGOXIN. [Concomitant]
     Active Substance: DIGOXIN
  3. PRILOSEC [Concomitant]
     Active Substance: OMEPRAZOLE MAGNESIUM
  4. OXYGEN. [Concomitant]
     Active Substance: OXYGEN
  5. TENORMIN [Concomitant]
     Active Substance: ATENOLOL
  6. VITAMIN D [Concomitant]
     Active Substance: CHOLECALCIFEROL
  7. CITRICIN [Concomitant]
  8. PAIN MED [Concomitant]
  9. SYNTHROID [Concomitant]
     Active Substance: LEVOTHYROXINE SODIUM
  10. XARELTO [Concomitant]
     Active Substance: RIVAROXABAN

REACTIONS (4)
  - Throat irritation [None]
  - Vomiting [None]
  - Gait disturbance [None]
  - Weight decreased [None]

NARRATIVE: CASE EVENT DATE: 201401
